FAERS Safety Report 4908947-4 (Version None)
Quarter: 2006Q1

REPORT INFORMATION
  Report Type: 
  Country: None (occurrence: None)
  Receive Date: 20060209
  Receipt Date: 20060129
  Transmission Date: 20060701
  Serious: Yes (Other)
  Sender: FDA-Public Use
  Company Number: 2006014707

PATIENT
  Age: 27 Year
  Sex: Male
  Weight: 97.5234 kg

DRUGS (2)
  1. DRAMAMINE [Suspect]
     Dosage: 8 TABLETS ONCE, ORAL
     Route: 048
     Dates: start: 20060129, end: 20060129
  2. DIAMORPHINE (DIAMORPHINE) [Suspect]

REACTIONS (5)
  - ALCOHOL POISONING [None]
  - DRUG ABUSER [None]
  - EUPHORIC MOOD [None]
  - OVERDOSE [None]
  - SOMNOLENCE [None]
